FAERS Safety Report 11658904 (Version 3)
Quarter: 2015Q4

REPORT INFORMATION
  Report Type: Report from Study
  Country: BR (occurrence: BR)
  Receive Date: 20151026
  Receipt Date: 20151128
  Transmission Date: 20160304
  Serious: Yes (Other)
  Sender: FDA-Public Use
  Company Number: PHHY2015BR098688

PATIENT
  Sex: Female
  Weight: 52 kg

DRUGS (1)
  1. ACLASTA [Suspect]
     Active Substance: ZOLEDRONIC ACID
     Indication: OSTEOPOROSIS
     Dosage: 5 MG, Q12MO
     Route: 042
     Dates: start: 20141015

REACTIONS (12)
  - Bone pain [Not Recovered/Not Resolved]
  - Contusion [Recovering/Resolving]
  - Confusional state [Recovering/Resolving]
  - Bladder disorder [Not Recovered/Not Resolved]
  - Urinary incontinence [Not Recovered/Not Resolved]
  - Urine abnormality [Recovering/Resolving]
  - Gait disturbance [Not Recovered/Not Resolved]
  - Asthenia [Recovering/Resolving]
  - Arthralgia [Recovering/Resolving]
  - Skin discolouration [Recovering/Resolving]
  - Diabetes mellitus inadequate control [Unknown]
  - Weight increased [Recovering/Resolving]
